FAERS Safety Report 4556565-2 (Version None)
Quarter: 2005Q1

REPORT INFORMATION
  Report Type: 
  Country: None (occurrence: None)
  Receive Date: 20050114
  Receipt Date: 20040315
  Transmission Date: 20050727
  Serious: Yes (Life-Threatening)
  Sender: FDA-Public Use
  Company Number: 001#0#2004-00056

PATIENT
  Age: 79 Year
  Sex: Female

DRUGS (2)
  1. ISOSORBIDE DINITRATE [Suspect]
     Dosage: 1680 MG (60 MG 28 IN 1 DAY (S)
     Route: 048
     Dates: start: 20030430, end: 20030430
  2. PAROXETINE HCL [Concomitant]

REACTIONS (3)
  - LUNG DISORDER [None]
  - MULTIPLE DRUG OVERDOSE [None]
  - SUICIDE ATTEMPT [None]
